APPROVED DRUG PRODUCT: COREG
Active Ingredient: CARVEDILOL
Strength: 6.25MG
Dosage Form/Route: TABLET;ORAL
Application: N020297 | Product #003 | TE Code: AB
Applicant: WAYLIS THERAPEUTICS LLC
Approved: Sep 14, 1995 | RLD: Yes | RS: No | Type: RX